FAERS Safety Report 22622269 (Version 5)
Quarter: 2024Q2

REPORT INFORMATION
  Report Type: Report from Study
  Country: US (occurrence: US)
  Receive Date: 20230620
  Receipt Date: 20240404
  Transmission Date: 20240715
  Serious: Yes (Disabling, Other)
  Sender: FDA-Public Use
  Company Number: US-HORIZON THERAPEUTICS-HZN-2023-000392

PATIENT

DRUGS (25)
  1. TEPEZZA [Suspect]
     Active Substance: TEPROTUMUMAB-TRBW
     Indication: Endocrine ophthalmopathy
     Dosage: FIRST INFUSION
     Route: 042
     Dates: start: 20221102
  2. TEPEZZA [Suspect]
     Active Substance: TEPROTUMUMAB-TRBW
     Indication: Endocrine ophthalmopathy
     Dosage: FOURTH INFUSION
     Route: 042
  3. AMLODIPINE [Concomitant]
     Active Substance: AMLODIPINE BESYLATE
     Dosage: 5 MG, BID
     Route: 048
  4. Bromsite 0.075% eye drop [Concomitant]
     Dosage: INSTILL 1 DROP INTO RIGHT EYE AT BEDSIDE
     Route: 047
  5. CLINDAMYCIN HYDROCHLORIDE [Concomitant]
     Active Substance: CLINDAMYCIN HYDROCHLORIDE
     Dosage: 300 MG, BID
     Route: 048
  6. DEXAMETHASONE [Concomitant]
     Active Substance: DEXAMETHASONE
     Dosage: 4 MG
     Route: 065
  7. DICLOFENAC SODIUM [Concomitant]
     Active Substance: DICLOFENAC\DICLOFENAC SODIUM
     Indication: Pain
     Dosage: 75 MG, BID, AS NEEDED WITH FOOD FOR PAIN
     Route: 048
  8. DOXYCYCLINE HYCLATE [Concomitant]
     Active Substance: DOXYCYCLINE HYCLATE
     Dosage: 100 MG
  9. FLUTICASONE PROPIONATE [Concomitant]
     Active Substance: FLUTICASONE PROPIONATE
     Dosage: 50 UG, 2 SPRAYS (SPRAYS IN EACH NOSTRIL ONCE DAILY)
     Route: 045
  10. HYDROCHLOROTHIAZIDE [Concomitant]
     Active Substance: HYDROCHLOROTHIAZIDE
     Dosage: 12.5 MG, QD
     Route: 048
  11. LEVOFLOXACIN [Concomitant]
     Active Substance: LEVOFLOXACIN
     Dosage: 500 MG ONCE DAILY
     Route: 048
  12. LEVOTHYROXINE SODIUM [Concomitant]
     Active Substance: LEVOTHYROXINE SODIUM
     Dosage: TAKE 1 TABLET BY MOUTH ONCE DAILY ON AN EMPTY STOMACH WITH 8 OUNCES OF WATER
     Route: 048
  13. LEVOTHYROXINE SODIUM [Concomitant]
     Active Substance: LEVOTHYROXINE SODIUM
     Dosage: TAKE 1 TABLET BY MOUTH ONCE DAILY ON AN EMPTY STOMACH WITH 8 OUNCES OF WATER
     Route: 048
  14. MOXIFLOXACIN HYDROCHLORIDE [Concomitant]
     Active Substance: MOXIFLOXACIN HYDROCHLORIDE\MOXIFLOXACIN HYDROCHLORIDE MONOHYDRATE
     Dosage: INSTILL 1 DROP INTO RIGHT EYE 4 TIMES DAILY
     Route: 047
  15. OMEPRAZOLE [Concomitant]
     Active Substance: OMEPRAZOLE
     Dosage: 20 MG, TAKE 1 CAPSULE BY MOUTH EVERY 24 HRS
     Route: 048
  16. PAXLOVID [Concomitant]
     Active Substance: NIRMATRELVIR\RITONAVIR
     Dosage: 150 MG-100 MG, TAKE AS DIRECTED ON PACKAGE
     Route: 065
  17. ROSUVASTATIN [Concomitant]
     Active Substance: ROSUVASTATIN
     Dosage: 5 MG, TAKE 1 TABLET BY MOUTH ONCE DAILY
     Route: 048
  18. TRAMADOL [Concomitant]
     Active Substance: TRAMADOL\TRAMADOL HYDROCHLORIDE
     Indication: Pain
     Dosage: 50 MG, TAKE 1 TO 2 TABLETS, BY MOUTH TWICE DAILY, AS NEEDED FOR SEVERE PAIN
     Route: 048
  19. ZINC [Concomitant]
     Active Substance: PYRITHIONE ZINC\ZINC\ZINC CHLORIDE
     Dosage: 100 MG, QD
     Route: 048
  20. VITAMIN D [Concomitant]
     Active Substance: VITAMIN D NOS
     Dosage: 5000 IU, QD
     Route: 048
  21. HERBALS\TURMERIC [Concomitant]
     Active Substance: HERBALS\TURMERIC
     Dosage: 500 MG, QD
     Route: 048
  22. VITAMINS [Concomitant]
     Active Substance: VITAMINS
     Dosage: 28-0.5 MG, QD
     Route: 048
  23. CALCIUM\MAGNESIUM\ZINC [Concomitant]
     Active Substance: CALCIUM\MAGNESIUM\ZINC
     Dosage: UNK UNK, QD
     Route: 048
  24. AMLODIPINE BESYLATE [Concomitant]
     Active Substance: AMLODIPINE BESYLATE
     Dosage: 5 MG, BID
     Route: 048
  25. ASPIRIN [Concomitant]
     Active Substance: ASPIRIN
     Dosage: 81 MG, QD
     Route: 048

REACTIONS (46)
  - Physical disability [Not Recovered/Not Resolved]
  - Disability [Not Recovered/Not Resolved]
  - Deafness neurosensory [Unknown]
  - Deafness permanent [Not Recovered/Not Resolved]
  - Haematochezia [Unknown]
  - Anxiety [Not Recovered/Not Resolved]
  - Concomitant disease aggravated [Unknown]
  - Pain [Not Recovered/Not Resolved]
  - Injury [Not Recovered/Not Resolved]
  - Emotional distress [Not Recovered/Not Resolved]
  - Impaired quality of life [Not Recovered/Not Resolved]
  - Discomfort [Not Recovered/Not Resolved]
  - Tinnitus [Unknown]
  - Auditory disorder [Unknown]
  - Upper respiratory tract infection [Unknown]
  - Sinus pain [Unknown]
  - Temporomandibular pain and dysfunction syndrome [Not Recovered/Not Resolved]
  - Dyspnoea paroxysmal nocturnal [Not Recovered/Not Resolved]
  - Paranasal sinus discomfort [Not Recovered/Not Resolved]
  - Ear pain [Unknown]
  - Ear discomfort [Unknown]
  - Headache [Unknown]
  - Autophony [Unknown]
  - Economic problem [Not Recovered/Not Resolved]
  - Blood thyroid stimulating hormone decreased [Unknown]
  - Product quality issue [Unknown]
  - Exophthalmos [Unknown]
  - Ocular hyperaemia [Not Recovered/Not Resolved]
  - Ear infection [Unknown]
  - Influenza [Unknown]
  - Fatigue [Unknown]
  - Upper-airway cough syndrome [Unknown]
  - Oropharyngeal pain [Unknown]
  - Productive cough [Unknown]
  - Nasopharyngitis [Unknown]
  - Nasal congestion [Unknown]
  - Pyrexia [Unknown]
  - Rhinitis [Unknown]
  - Paranasal sinus discomfort [Unknown]
  - Depression [Unknown]
  - Chest discomfort [Unknown]
  - Hypersensitivity [Unknown]
  - Urticaria [Unknown]
  - COVID-19 [Unknown]
  - Dry mouth [Unknown]
  - Wheezing [Unknown]

NARRATIVE: CASE EVENT DATE: 20121201
